FAERS Safety Report 5071613-1 (Version None)
Quarter: 2006Q3

REPORT INFORMATION
  Report Type: 
  Country: None (occurrence: None)
  Receive Date: 20060803
  Receipt Date: 20060803
  Transmission Date: 20061208
  Serious: Yes (Hospitalization)
  Sender: FDA-Public Use
  Company Number: None

PATIENT
  Sex: Female
  Weight: 90 kg

DRUGS (5)
  1. CISPLATIN [Suspect]
     Dosage: 97 MG
  2. TOPOTECAN [Suspect]
     Dosage: 1.46 MG
  3. AVALIDE [Concomitant]
  4. METOPROLOL TARTRATE [Concomitant]
  5. PAXIL [Concomitant]

REACTIONS (5)
  - ANAEMIA [None]
  - NEUTROPENIA [None]
  - PULMONARY EMBOLISM [None]
  - RECTAL HAEMORRHAGE [None]
  - THROMBOCYTOPENIA [None]
